FAERS Safety Report 7775759-6 (Version None)
Quarter: 2011Q3

REPORT INFORMATION
  Report Type: 
  Country: None (occurrence: None)
  Receive Date: 20110923
  Receipt Date: 20110919
  Transmission Date: 20111222
  Serious: Yes (Death, Hospitalization, Other)
  Sender: FDA-Public Use
  Company Number: US-ELI_LILLY_AND_COMPANY-US201109005454

PATIENT
  Sex: Male

DRUGS (1)
  1. ALIMTA [Suspect]
     Indication: NASAL SINUS CANCER
     Dosage: UNK, UNKNOWN

REACTIONS (3)
  - SPINAL CORD COMPRESSION [None]
  - OFF LABEL USE [None]
  - DEATH [None]
